FAERS Safety Report 5943143-3 (Version None)
Quarter: 2008Q4

REPORT INFORMATION
  Report Type: 
  Country: None (occurrence: None)
  Receive Date: 20081105
  Receipt Date: 20081105
  Transmission Date: 20090506
  Serious: Yes (Other)
  Sender: FDA-Public Use
  Company Number: None

PATIENT
  Sex: Female
  Weight: 82.5547 kg

DRUGS (2)
  1. DIVALPROEX SODIUM [Suspect]
     Indication: ANXIETY
     Dosage: 250MG TWO TABS TID PO   ONE MONTH, 3WKS, + 2 DAYS
     Route: 048
  2. DIVALPROEX SODIUM [Suspect]
     Indication: BIPOLAR DISORDER
     Dosage: 250MG TWO TABS TID PO   ONE MONTH, 3WKS, + 2 DAYS
     Route: 048

REACTIONS (9)
  - ACTIVITIES OF DAILY LIVING IMPAIRED [None]
  - AFFECT LABILITY [None]
  - FATIGUE [None]
  - IMPAIRED WORK ABILITY [None]
  - MEMORY IMPAIRMENT [None]
  - METAMORPHOPSIA [None]
  - PRODUCT QUALITY ISSUE [None]
  - PRURITUS [None]
  - SLEEP DISORDER [None]
